FAERS Safety Report 6696808-2 (Version None)
Quarter: 2010Q2

REPORT INFORMATION
  Report Type: 
  Country: None (occurrence: None)
  Receive Date: 20100426
  Receipt Date: 20100413
  Transmission Date: 20101027
  Serious: Yes (Life-Threatening, Hospitalization)
  Sender: FDA-Public Use
  Company Number: DE-ROCHE-698165

PATIENT
  Sex: Male
  Weight: 89 kg

DRUGS (1)
  1. AVASTIN [Suspect]
     Indication: RECTAL CANCER RECURRENT
     Route: 065
     Dates: start: 20080301, end: 20091001

REACTIONS (4)
  - EMBOLISM [None]
  - ENTEROVESICAL FISTULA [None]
  - PERIPHERAL ARTERIAL OCCLUSIVE DISEASE [None]
  - UROSEPSIS [None]
